FAERS Safety Report 7618688-0 (Version None)
Quarter: 2011Q3

REPORT INFORMATION
  Report Type: 
  Country: None (occurrence: None)
  Receive Date: 20110718
  Receipt Date: 20110708
  Transmission Date: 20111222
  Serious: Yes (Hospitalization)
  Sender: FDA-Public Use
  Company Number: BR-SANOFI-AVENTIS-2010SA022239

PATIENT
  Age: 82 Year
  Sex: Male
  Weight: 93 kg

DRUGS (19)
  1. AUTOPEN 24 [Suspect]
     Indication: DEVICE THERAPY
  2. ATENOLOL [Concomitant]
     Indication: BLOOD PRESSURE
     Route: 048
  3. LANTUS [Suspect]
     Route: 058
  4. ROSUVASTATIN CALCIUM [Concomitant]
     Route: 048
  5. HALOPERIDOL [Concomitant]
     Route: 048
  6. FELDENE [Concomitant]
     Route: 048
  7. HYDROCHLOROTHIAZIDE [Concomitant]
     Route: 048
  8. TRETINOIN [Concomitant]
     Indication: SKIN CANCER
     Route: 048
  9. LANTUS [Suspect]
     Route: 058
  10. OPTIPEN [Suspect]
     Indication: DEVICE THERAPY
  11. NOVORAPID [Concomitant]
     Indication: TYPE 2 DIABETES MELLITUS
     Dosage: 8 IU BEFORE LUNCH AND 6 IU BEFORE DINNER
     Route: 058
  12. ALPRAZOLAM [Concomitant]
     Route: 048
  13. ACETYLSALICYLIC ACID SRT [Concomitant]
     Route: 048
  14. LANTUS [Suspect]
     Route: 058
  15. FINASTERIDE [Concomitant]
     Route: 048
  16. LOSARTAN POTASSIUM [Concomitant]
     Route: 048
  17. PIROXICAM [Concomitant]
     Route: 048
  18. CALCIUM CARBONATE/CALCIUM GLUCONATE/CALCIUM LACTATE/ERGOCALCIFEROL [Concomitant]
     Route: 048
  19. DOXAZOSIN MESYLATE [Concomitant]
     Route: 048

REACTIONS (8)
  - BLOOD GLUCOSE INCREASED [None]
  - WEIGHT DECREASED [None]
  - URINARY TRACT INFECTION [None]
  - CHONDROPATHY [None]
  - HYPOGLYCAEMIA [None]
  - VERTIGO [None]
  - RENAL IMPAIRMENT [None]
  - BENIGN PROSTATIC HYPERPLASIA [None]
